FAERS Safety Report 6258582-3 (Version None)
Quarter: 2009Q3

REPORT INFORMATION
  Report Type: 
  Country: None (occurrence: None)
  Receive Date: 20090707
  Receipt Date: 20090629
  Transmission Date: 20100115
  Serious: Yes (Congenital Anomaly, Other)
  Sender: FDA-Public Use
  Company Number: US-ROCHE-640956

PATIENT

DRUGS (6)
  1. MYCOPHENOLATE MOFETIL [Suspect]
  2. MYCOPHENOLATE MOFETIL [Suspect]
     Dosage: DOSE REDUCED
  3. BACTRIM [Suspect]
     Indication: INFECTION PROPHYLAXIS
  4. TACROLIMUS [Suspect]
  5. PREDNISONE [Suspect]
  6. ACYCLOVIR [Suspect]
     Indication: INFECTION PROPHYLAXIS

REACTIONS (14)
  - ANOTIA [None]
  - CATARACT CONGENITAL [None]
  - CENTRAL NERVOUS SYSTEM NECROSIS [None]
  - CLEFT LIP AND PALATE [None]
  - COLOBOMA [None]
  - CONGENITAL MUSCULOSKELETAL ANOMALY [None]
  - HEART DISEASE CONGENITAL [None]
  - HYPERTELORISM OF ORBIT [None]
  - INTESTINAL MALROTATION [None]
  - MICROGNATHIA [None]
  - MICROPHTHALMOS [None]
  - MICROTIA [None]
  - PNEUMONIA [None]
  - PULMONARY VASCULAR DISORDER [None]
